FAERS Safety Report 5454518-3 (Version None)
Quarter: 2007Q3

REPORT INFORMATION
  Report Type: 
  Country: None (occurrence: None)
  Receive Date: 20070917
  Receipt Date: 20060920
  Transmission Date: 20080115
  Serious: No
  Sender: FDA-Public Use
  Company Number: US-ASTRAZENECA-2006UW15724

PATIENT
  Age: 16026 Day
  Sex: Female
  Weight: 50 kg

DRUGS (10)
  1. SEROQUEL [Suspect]
     Indication: BIPOLAR DISORDER
     Route: 048
  2. SEROQUEL [Suspect]
     Indication: DEPRESSION
     Route: 048
  3. SEROQUEL [Suspect]
     Route: 048
  4. SEROQUEL [Suspect]
     Route: 048
  5. NEXIUM [Concomitant]
     Indication: GASTROOESOPHAGEAL REFLUX DISEASE
     Route: 048
     Dates: start: 20060617
  6. CYMBALTA [Concomitant]
     Indication: DEPRESSION
     Route: 048
     Dates: start: 20051109
  7. CARDIZEM [Concomitant]
     Indication: PALPITATIONS
     Route: 048
     Dates: start: 20051201, end: 20060803
  8. HYDROXYZINE [Concomitant]
     Indication: INSOMNIA
     Route: 048
     Dates: start: 20051212
  9. CLONAZEPAM [Concomitant]
     Indication: ANXIETY
     Route: 048
  10. FIORICET [Concomitant]
     Indication: MIGRAINE
     Route: 048

REACTIONS (2)
  - NEUROPATHY PERIPHERAL [None]
  - PAIN IN EXTREMITY [None]
